FAERS Safety Report 4610798-5 (Version None)
Quarter: 2005Q2

REPORT INFORMATION
  Report Type: 
  Country: None (occurrence: None)
  Receive Date: 20050223
  Receipt Date: 20040122
  Transmission Date: 20051028
  Serious: Yes (Other)
  Sender: FDA-Public Use
  Company Number: WAES 0401USA01823

PATIENT
  Age: 59 Year
  Sex: Female

DRUGS (9)
  1. ZOCOR [Suspect]
     Indication: DIABETES MELLITUS
     Dosage: 40 MG/DAILY/PO
     Route: 048
     Dates: start: 20021031, end: 20030719
  2. ZOCOR [Suspect]
     Indication: HYPERCHOLESTEROLAEMIA
     Dosage: 40 MG/DAILY/PO
     Route: 048
     Dates: start: 20021031, end: 20030719
  3. CELEBREX [Concomitant]
  4. COZAAR [Concomitant]
  5. ELAVIL [Concomitant]
  6. GLUCOPHAGE [Concomitant]
  7. REGLAN [Concomitant]
  8. TYLENOL W/ CODEINE NO. 3 [Concomitant]
  9. GLYBURIDE [Concomitant]

REACTIONS (1)
  - RHABDOMYOLYSIS [None]
